FAERS Safety Report 7053702-5 (Version None)
Quarter: 2010Q4

REPORT INFORMATION
  Report Type: 
  Country: None (occurrence: None)
  Receive Date: 20101020
  Receipt Date: 20101012
  Transmission Date: 20110411
  Serious: Yes (Hospitalization)
  Sender: FDA-Public Use
  Company Number: A0764970A

PATIENT
  Age: 60 Year
  Sex: Male
  Weight: 65.9 kg

DRUGS (9)
  1. AVANDIA [Suspect]
     Route: 048
     Dates: start: 20040101, end: 20070101
  2. HYDROCHLOROTHIAZIDE [Concomitant]
  3. ATENOLOL [Concomitant]
  4. METFORMIN HCL [Concomitant]
  5. GLIMEPIRIDE [Concomitant]
  6. PLAVIX [Concomitant]
  7. SIMVASTATIN [Concomitant]
  8. NITROGLYCERIN [Concomitant]
  9. ASPIRIN [Concomitant]

REACTIONS (1)
  - MYOCARDIAL INFARCTION [None]
